FAERS Safety Report 4407800-2 (Version None)
Quarter: 2004Q3

REPORT INFORMATION
  Report Type: 
  Country: None (occurrence: None)
  Receive Date: 20040726
  Receipt Date: 20040713
  Transmission Date: 20050211
  Serious: Yes (Other)
  Sender: FDA-Public Use
  Company Number: US-AMGEN-US083360

PATIENT
  Sex: Male

DRUGS (3)
  1. NEULASTA [Suspect]
     Indication: CHEMOTHERAPY
     Route: 058
     Dates: start: 20040623, end: 20040623
  2. CARBOPLATIN [Concomitant]
     Dates: start: 20040622
  3. TAXOL [Concomitant]
     Dates: start: 20040622

REACTIONS (3)
  - BACK PAIN [None]
  - BONE PAIN [None]
  - SICKLE CELL ANAEMIA WITH CRISIS [None]
